FAERS Safety Report 9515107 (Version 1)
Quarter: 2013Q1

REPORT INFORMATION
  Report Type: Spontaneous
  Country: US (occurrence: None)
  Receive Date: 20130305
  Receipt Date: 20130305
  Transmission Date: 20140127
  Serious: Yes (Disabling, Other)
  Sender: FDA-Public Use
  Company Number: 163-21880-12103605

PATIENT
  Age: 52 Year
  Sex: Male
  Weight: 73.48 kg

DRUGS (13)
  1. REVLIMID (LENALIDOMIDE) (15 MILLIGRAM, CAPSULES) [Suspect]
     Indication: PLASMA CELL MYELOMA
     Dosage: 15 MG, 1 IN 1 D, PO
     Route: 048
     Dates: start: 201202
  2. ACYCLOVIR (ACICLOVIR) (UNKNOWN) [Concomitant]
  3. ASPIRIN (ACETYLSALICYLIC ACID) (UNKNOWN)? [Concomitant]
  4. DEXAMETHASONE (DEXAMETHASONE) (UNKNOWN) [Concomitant]
  5. FLUCONAZOLE (FLUCONAZOLE) (UNKNOWN)? [Concomitant]
  6. LORAZEPAM (LORAZEPAM) (UNKNOWN) [Concomitant]
  7. OMEPRAZOLE (OMEPRAZOLE) (UNKNOWN) [Concomitant]
  8. OXYCONTIN (OXYCODONE HYDROCHLORIDE) (UNKNOWN) [Concomitant]
  9. POTASSIUM (POTASSIUM) (UNKNOWN) [Concomitant]
  10. PRILOSEC (OMEPRAZOLE) (UNKNOWN) [Concomitant]
  11. TAMIFLU (OSELTAMIVIR) (UNKNOWN) [Concomitant]
  12. VELCADE [Concomitant]
  13. ZOMETA (ZOLEDRONIC ACID) (UNKNOWN) [Concomitant]

REACTIONS (1)
  - Nasopharyngitis [None]
